FAERS Safety Report 11247717 (Version 1)
Quarter: 2015Q3

REPORT INFORMATION
  Report Type: Spontaneous
  Country: DE (occurrence: DE)
  Receive Date: 20150708
  Receipt Date: 20150708
  Transmission Date: 20151125
  Serious: Yes (Other)
  Sender: FDA-Public Use
  Company Number: DE-BAUSCH-BL-2015-015155

PATIENT
  Age: 7 Year
  Sex: Male
  Weight: 25 kg

DRUGS (1)
  1. CYCLOPENTOLATE 1% EYE DROPS [Suspect]
     Active Substance: CYCLOPENTOLATE
     Indication: MYDRIASIS
     Dosage: 3 X 1 DROPS IN EACH EYE AT A 7-MINUTE INTERVAL
     Route: 047
     Dates: start: 20150519

REACTIONS (10)
  - Loss of consciousness [Recovered/Resolved]
  - Nausea [Recovered/Resolved]
  - Fall [Recovered/Resolved]
  - Pallor [Recovered/Resolved]
  - Peripheral coldness [Recovered/Resolved]
  - Vomiting [Recovered/Resolved]
  - Accidental overdose [Recovered/Resolved]
  - Muscle spasms [Recovered/Resolved]
  - Muscle twitching [Recovered/Resolved]
  - Circulatory collapse [Recovered/Resolved]

NARRATIVE: CASE EVENT DATE: 20150521
